FAERS Safety Report 9206845 (Version 1)
Quarter: 2013Q2

REPORT INFORMATION
  Report Type: Spontaneous
  Country: US (occurrence: US)
  Receive Date: 20130403
  Receipt Date: 20130403
  Transmission Date: 20140414
  Serious: Yes (Other)
  Sender: FDA-Public Use
  Company Number: US-SANOFI-AVENTIS-2013SA000524

PATIENT
  Age: 54 Year
  Sex: Female

DRUGS (1)
  1. AUBAGIO [Suspect]
     Indication: MULTIPLE SCLEROSIS
     Route: 048
     Dates: start: 201212, end: 20130308

REACTIONS (13)
  - Gait disturbance [Unknown]
  - Diarrhoea [Unknown]
  - Gastrointestinal disorder [Unknown]
  - Headache [Unknown]
  - Memory impairment [Unknown]
  - Vision blurred [Unknown]
  - Weight decreased [Unknown]
  - Lethargy [Unknown]
  - Dizziness [Unknown]
  - Balance disorder [Unknown]
  - Fall [Unknown]
  - Fatigue [Unknown]
  - Asthenia [Unknown]
